FAERS Safety Report 24806035 (Version 1)
Quarter: 2025Q1

REPORT INFORMATION
  Report Type: Spontaneous
  Country: US (occurrence: US)
  Receive Date: 20250103
  Receipt Date: 20250103
  Transmission Date: 20250409
  Serious: No
  Sender: PFIZER
  Company Number: US-PFIZER INC-202400334738

PATIENT
  Age: 57 Year
  Sex: Female
  Weight: 47.6 kg

DRUGS (8)
  1. ERYTHROMYCIN [Suspect]
     Active Substance: ERYTHROMYCIN
  2. RIFAXIMIN [Suspect]
     Active Substance: RIFAXIMIN
  3. CHLORHEXIDINE [Suspect]
     Active Substance: CHLORHEXIDINE
  4. WARFARIN [Suspect]
     Active Substance: WARFARIN
  5. COUMADIN [Suspect]
     Active Substance: WARFARIN SODIUM
  6. BACLOFEN [Concomitant]
     Active Substance: BACLOFEN
     Indication: Pain
     Dosage: 10 MG, 3X/DAY (REGULARLY)
  7. MORPHINE [Concomitant]
     Active Substance: MORPHINE
  8. VALIUM [Concomitant]
     Active Substance: DIAZEPAM
     Indication: Pain
     Dosage: 10 MG, 3X/DAY

REACTIONS (2)
  - Rash [Unknown]
  - Urticaria [Unknown]
